FAERS Safety Report 9387869 (Version 2)
Quarter: 2013Q3

REPORT INFORMATION
  Report Type: Spontaneous
  Country: US (occurrence: US)
  Receive Date: 20130708
  Receipt Date: 20130909
  Transmission Date: 20140515
  Serious: Yes (Other)
  Sender: FDA-Public Use
  Company Number: US-PFIZER INC-2013197392

PATIENT
  Age: 83 Year
  Sex: Male
  Weight: 81.63 kg

DRUGS (1)
  1. LIPITOR [Suspect]
     Indication: BLOOD CHOLESTEROL INCREASED
     Dosage: 20 MG, 5 DAYS/WEEK
     Route: 048
     Dates: start: 2008, end: 20130629

REACTIONS (1)
  - Urinary retention [Unknown]
